FAERS Safety Report 24378142 (Version 1)
Quarter: 2024Q3

REPORT INFORMATION
  Report Type: Spontaneous
  Country: US (occurrence: US)
  Receive Date: 20240930
  Receipt Date: 20240930
  Transmission Date: 20241017
  Serious: Yes (Other)
  Sender: Haleon PLC
  Company Number: US-HALEON-2199038

PATIENT
  Sex: Female

DRUGS (1)
  1. ACETAMINOPHEN\DEXTROMETHORPHAN HYDROBROMIDE\PHENYLEPHRINE HYDROCHLORID [Suspect]
     Active Substance: ACETAMINOPHEN\DEXTROMETHORPHAN HYDROBROMIDE\PHENYLEPHRINE HYDROCHLORIDE
     Indication: Product used for unknown indication
     Dosage: EXPIRY DATE: 2026-10
     Dates: start: 20240925

REACTIONS (2)
  - Choking [Unknown]
  - Retching [Unknown]

NARRATIVE: CASE EVENT DATE: 20240925
